FAERS Safety Report 4702004-8 (Version None)
Quarter: 2005Q2

REPORT INFORMATION
  Report Type: 
  Country: None (occurrence: None)
  Receive Date: 20050627
  Receipt Date: 20050620
  Transmission Date: 20051028
  Serious: Yes (Hospitalization)
  Sender: FDA-Public Use
  Company Number: ZONI002182

PATIENT
  Age: 6 Year
  Sex: Male

DRUGS (1)
  1. ZONEGRAN [Suspect]
     Dosage: 200 MG, UNKNOWN, ORAL
     Route: 048
     Dates: start: 20050101

REACTIONS (1)
  - STEVENS-JOHNSON SYNDROME [None]
